FAERS Safety Report 9890972 (Version 1)
Quarter: 2014Q1

REPORT INFORMATION
  Report Type: Report from Study
  Country: US (occurrence: US)
  Receive Date: 20140212
  Receipt Date: 20140212
  Transmission Date: 20141002
  Serious: Yes (Hospitalization)
  Sender: FDA-Public Use
  Company Number: US-ABBVIE-14P-163-1199153-00

PATIENT
  Age: 50 Year
  Sex: Male
  Weight: 90.8 kg

DRUGS (1)
  1. ANDROGEL [Suspect]
     Indication: PRODUCT USED FOR UNKNOWN INDICATION
     Dosage: 5 PUMPS DAILY
     Route: 061
     Dates: start: 2010

REACTIONS (3)
  - Influenza [Recovering/Resolving]
  - Dizziness [Recovered/Resolved]
  - Blood testosterone abnormal [Not Recovered/Not Resolved]
